FAERS Safety Report 18527152 (Version 2)
Quarter: 2020Q4

REPORT INFORMATION
  Report Type: Spontaneous
  Country: US (occurrence: US)
  Receive Date: 20201120
  Receipt Date: 20201207
  Transmission Date: 20210114
  Serious: No
  Sender: FDA-Public Use
  Company Number: US-GLAXOSMITHKLINE-US2020AMR224563

PATIENT
  Sex: Female

DRUGS (2)
  1. ZEJULA [Suspect]
     Active Substance: NIRAPARIB
     Dosage: 200 MG, QD
     Route: 048
  2. ZEJULA [Suspect]
     Active Substance: NIRAPARIB
     Indication: OVARIAN CANCER
     Dosage: 200 MG, QD
     Dates: start: 20201021

REACTIONS (7)
  - Flatulence [Recovered/Resolved]
  - Constipation [Unknown]
  - Abdominal pain [Unknown]
  - Carbohydrate antigen 125 increased [Unknown]
  - Gait inability [Unknown]
  - Chest pain [Recovered/Resolved]
  - Abdominal tenderness [Unknown]
